FAERS Safety Report 6371735-9 (Version None)
Quarter: 2009Q3

REPORT INFORMATION
  Report Type: 
  Country: None (occurrence: None)
  Receive Date: 20090923
  Receipt Date: 20090914
  Transmission Date: 20100115
  Serious: Yes (Other)
  Sender: FDA-Public Use
  Company Number: IT-AMGEN-US364899

PATIENT
  Sex: Female

DRUGS (5)
  1. ENBREL [Suspect]
     Indication: RHEUMATOID ARTHRITIS
     Route: 058
     Dates: start: 20081203
  2. METHOTREXATE [Suspect]
     Indication: RHEUMATOID ARTHRITIS
     Route: 030
     Dates: start: 19960615, end: 20090803
  3. PREDNISONE [Concomitant]
     Dosage: 5MG
     Dates: start: 19960615
  4. DICLOFENAC/MISOPROSTOL [Concomitant]
     Dosage: 75MG
     Dates: start: 20080528
  5. FOLINA [Concomitant]
     Dosage: 5MG
     Dates: start: 19960615, end: 20080803

REACTIONS (1)
  - RHEUMATOID NODULE [None]
